FAERS Safety Report 8185353-3 (Version None)
Quarter: 2012Q1

REPORT INFORMATION
  Report Type: 
  Country: None (occurrence: None)
  Receive Date: 20120305
  Receipt Date: 20120228
  Transmission Date: 20120608
  Serious: Yes (Other)
  Sender: FDA-Public Use
  Company Number: PHHY2011US25672

PATIENT
  Sex: Female
  Weight: 24.7 kg

DRUGS (7)
  1. ALBUTEROL [Concomitant]
     Indication: ASTHMA
     Dosage: 2 PUFFS PRN
  2. CLARITIN [Concomitant]
     Indication: RHINITIS ALLERGIC
     Dosage: 2.5 MG DAILY PRN
     Route: 048
     Dates: start: 20110830
  3. KEPPRA [Concomitant]
     Indication: CONVULSION
     Route: 048
     Dates: start: 20100924
  4. EXJADE [Suspect]
     Dosage: 750 MG, QD
     Route: 048
     Dates: start: 20111015, end: 20111227
  5. EXJADE [Suspect]
     Dosage: 500 MG, QD
     Route: 048
     Dates: start: 20111231, end: 20120221
  6. ASPIRIN [Concomitant]
     Indication: ISCHAEMIC HEART DISEASE PROPHYLAXIS
     Dosage: 81 MG, UNK
     Route: 048
     Dates: start: 20101120
  7. EXJADE [Suspect]
     Indication: IRON OVERLOAD
     Dosage: 500 MG, QD
     Route: 048
     Dates: start: 20110301

REACTIONS (7)
  - ABDOMINAL DISCOMFORT [None]
  - POST PROCEDURAL HAEMORRHAGE [None]
  - NAUSEA [None]
  - ABDOMINAL PAIN [None]
  - VOMITING [None]
  - TRANSAMINASES INCREASED [None]
  - SUBDURAL HAEMORRHAGE [None]
